FAERS Safety Report 16758441 (Version 1)
Quarter: 2019Q3

REPORT INFORMATION
  Report Type: Spontaneous
  Country: BE (occurrence: BE)
  Receive Date: 20190830
  Receipt Date: 20190830
  Transmission Date: 20191005
  Serious: Yes (Hospitalization, Other)
  Sender: FDA-Public Use
  Company Number: BE-ACCORD-153319

PATIENT
  Age: 56 Year
  Sex: Male

DRUGS (16)
  1. LITICAN [Concomitant]
     Active Substance: ALIZAPRIDE HYDROCHLORIDE
     Indication: NAUSEA
     Dosage: (50 MG, AS REQUIRED)
     Route: 048
     Dates: start: 20180524
  2. TEMESTA [Concomitant]
     Indication: NAUSEA
     Dosage: 2.5 MILLIGRAM DAILY;
     Route: 048
     Dates: start: 20190507
  3. FLUOROURACIL. [Suspect]
     Active Substance: FLUOROURACIL
     Indication: COLORECTAL CANCER METASTATIC
     Dosage: 400 MG/M2 DAILY
     Route: 040
     Dates: start: 20181211
  4. FRAXIPARINE [Concomitant]
     Active Substance: NADROPARIN CALCIUM
     Indication: THROMBOSIS
     Dosage: .6 ML DAILY;
     Route: 058
     Dates: start: 20190509, end: 20190521
  5. IRINOTECAN [Suspect]
     Active Substance: IRINOTECAN
     Indication: COLORECTAL CANCER METASTATIC
     Dosage: 180 MG/M2 DAILY; DAY 1 OF EACH 14 DAY CYCLE
     Route: 042
     Dates: start: 20181211
  6. PANTOMED (PANTOPRAZOLE) [Concomitant]
     Active Substance: PANTOPRAZOLE
     Indication: PROPHYLAXIS
     Dosage: 40 MILLIGRAM DAILY;
     Route: 048
     Dates: start: 20180604
  7. AMLOR [Concomitant]
     Active Substance: AMLODIPINE BESYLATE
     Indication: HYPERTENSION
     Dosage: 5 MILLIGRAM DAILY;
     Route: 048
     Dates: start: 20190122
  8. ZYPREXA [Concomitant]
     Active Substance: OLANZAPINE
     Indication: NAUSEA
     Dosage: 5 MILLIGRAM DAILY
     Route: 048
     Dates: start: 20190122
  9. LITICAN [Concomitant]
     Active Substance: ALIZAPRIDE HYDROCHLORIDE
     Indication: NAUSEA
     Dosage: (50 MG, AS REQUIRED)
     Route: 048
     Dates: start: 20190205
  10. LEUCOVORIN. [Suspect]
     Active Substance: LEUCOVORIN
     Indication: COLORECTAL CANCER METASTATIC
     Dosage: DAY 1 OF EACH 14 DAY CYCLE
     Route: 042
     Dates: start: 20181211
  11. BEVACIZUMAB. [Suspect]
     Active Substance: BEVACIZUMAB
     Indication: COLORECTAL CANCER METASTATIC
     Dosage: 5 MG/KG DAILY; DAY 1 OF EACH 14 DAY CYCLE
     Route: 042
     Dates: start: 20181211
  12. MEDICA [Concomitant]
     Indication: OROPHARYNGEAL PAIN
     Dosage: 5/1 MG (AS REQUIRED)
     Route: 048
     Dates: start: 20190312
  13. MITOSYL [Concomitant]
     Indication: ANORECTAL DISCOMFORT
     Dosage: 1 APPLICATION (AS REQUIRED)
     Route: 061
     Dates: start: 20180529
  14. FORLAX [Concomitant]
     Active Substance: POLYETHYLENE GLYCOL 4000
     Indication: CONSTIPATION
     Dosage: 1 BAG (AS REQUIRED), MACROGOL 4000
     Route: 048
     Dates: start: 20180529
  15. DAFALGAN [Concomitant]
     Active Substance: ACETAMINOPHEN
     Indication: HEADACHE
     Dosage: (1 MG, AS REQUIRED)
     Route: 048
     Dates: start: 201805
  16. FLUOROURACIL. [Suspect]
     Active Substance: FLUOROURACIL
     Indication: COLORECTAL CANCER METASTATIC
     Dosage: 2400 MG/M2 DAILY CONTINUOUS INFUSION OVER 46-48 HOURS
     Route: 042
     Dates: start: 20181211

REACTIONS (5)
  - Dehydration [Recovered/Resolved]
  - Fatigue [Unknown]
  - Vomiting [Unknown]
  - Subclavian vein thrombosis [Unknown]
  - Nausea [Unknown]

NARRATIVE: CASE EVENT DATE: 20190509
